FAERS Safety Report 6531274-9 (Version None)
Quarter: 2010Q1

REPORT INFORMATION
  Report Type: 
  Country: None (occurrence: None)
  Receive Date: 20100108
  Receipt Date: 20091230
  Transmission Date: 20100710
  Serious: Yes (Hospitalization)
  Sender: FDA-Public Use
  Company Number: US-NOVOPROD-300953

PATIENT
  Sex: Female
  Weight: 108.84 kg

DRUGS (3)
  1. NOVOLIN 70/30 [Suspect]
     Indication: TYPE 2 DIABETES MELLITUS
     Dosage: 65 IU, BID (MORNING AND EVENING)
     Route: 058
  2. NOVOLIN 70/30 [Suspect]
     Route: 058
  3. NOVOLIN R RELI-ON [Suspect]
     Indication: TYPE 2 DIABETES MELLITUS
     Dosage: UNK, SLIDING SCALE
     Route: 058

REACTIONS (9)
  - ANAEMIA [None]
  - BLOOD GLUCOSE DECREASED [None]
  - BLOOD GLUCOSE INCREASED [None]
  - BLOOD PRESSURE DECREASED [None]
  - CELLULITIS [None]
  - DEHYDRATION [None]
  - EXPIRED DRUG ADMINISTERED [None]
  - GASTROENTERITIS VIRAL [None]
  - INCORRECT STORAGE OF DRUG [None]
